FAERS Safety Report 6058622-0 (Version None)
Quarter: 2009Q1

REPORT INFORMATION
  Report Type: 
  Country: None (occurrence: None)
  Receive Date: 20090130
  Receipt Date: 20090119
  Transmission Date: 20090719
  Serious: Yes (Other)
  Sender: FDA-Public Use
  Company Number: JP-PFIZER INC-2008025112

PATIENT
  Age: 22 Year
  Sex: Male
  Weight: 84.7 kg

DRUGS (8)
  1. SOMATROPIN [Suspect]
     Indication: HYPOPITUITARISM
     Dosage: 1.1 MG/ 6 TIMES A WEEK
     Route: 058
     Dates: start: 20080128, end: 20080227
  2. SOMATROPIN [Suspect]
     Dosage: 0.6 MG/ 3 TIMES A WEEK
     Route: 058
     Dates: start: 20080319, end: 20080730
  3. SOMATROPIN [Suspect]
     Dosage: 0.4 MG/2 TIMES A WEEK
     Route: 058
     Dates: start: 20080731
  4. CORTRIL [Concomitant]
     Route: 048
  5. THYRADIN S [Concomitant]
     Route: 048
  6. CABASER [Concomitant]
  7. GONAL-F [Concomitant]
     Route: 058
  8. PROFASI HP [Concomitant]
     Route: 058

REACTIONS (1)
  - HEPATIC FUNCTION ABNORMAL [None]
